FAERS Safety Report 5063345-0 (Version None)
Quarter: 2006Q3

REPORT INFORMATION
  Report Type: 
  Country: None (occurrence: None)
  Receive Date: 20060703
  Receipt Date: 20060526
  Transmission Date: 20061208
  Serious: No
  Sender: FDA-Public Use
  Company Number: 2006PV014722

PATIENT
  Age: 45 Year
  Sex: Male

DRUGS (1)
  1. SYMLIN [Suspect]
     Indication: DIABETES MELLITUS INSULIN-DEPENDENT
     Dosage: SC
     Route: 058

REACTIONS (1)
  - SOMNOLENCE [None]
